FAERS Safety Report 19318221 (Version 3)
Quarter: 2021Q3

REPORT INFORMATION
  Report Type: Report from Study
  Country: US (occurrence: US)
  Receive Date: 20210527
  Receipt Date: 20210827
  Transmission Date: 20211014
  Serious: No
  Sender: FDA-Public Use
  Company Number: NVSC2021US119507

PATIENT
  Age: 66 Year
  Sex: Female

DRUGS (2)
  1. PIQRAY [Suspect]
     Active Substance: ALPELISIB
     Dosage: 300 MG, QD (RESTARTED AFTER ONE WEEK)
     Route: 048
     Dates: start: 202105
  2. PIQRAY [Suspect]
     Active Substance: ALPELISIB
     Indication: BREAST CANCER
     Dosage: 300 MG, QD
     Route: 048
     Dates: start: 202105

REACTIONS (7)
  - Taste disorder [Unknown]
  - Weight decreased [Unknown]
  - Decreased appetite [Unknown]
  - Influenza [Unknown]
  - Hepatic enzyme increased [Unknown]
  - Oral pain [Unknown]
  - Rash [Unknown]

NARRATIVE: CASE EVENT DATE: 20210526
